FAERS Safety Report 4409691-2 (Version None)
Quarter: 2004Q3

REPORT INFORMATION
  Report Type: 
  Country: None (occurrence: None)
  Receive Date: 20040727
  Receipt Date: 20040727
  Transmission Date: 20050211
  Serious: Yes (Other)
  Sender: FDA-Public Use
  Company Number: None

PATIENT
  Age: 39 Year
  Sex: Male
  Weight: 73.5 kg

DRUGS (3)
  1. ZIPRASIDONE [Suspect]
     Indication: SCHIZOPHRENIA
     Dates: start: 20030429, end: 20030722
  2. LITHIUM [Concomitant]
  3. VENLAFAXINE HCL [Concomitant]

REACTIONS (1)
  - BLOOD TRIGLYCERIDES INCREASED [None]
